FAERS Safety Report 7802682-0 (Version None)
Quarter: 2011Q4

REPORT INFORMATION
  Report Type: 
  Country: None (occurrence: None)
  Receive Date: 20111007
  Receipt Date: 20110926
  Transmission Date: 20120403
  Serious: Yes (Other)
  Sender: FDA-Public Use
  Company Number: PHFR2011GB04540

PATIENT
  Sex: Male

DRUGS (5)
  1. CARBAMAZEPINE [Concomitant]
     Indication: EPILEPSY
     Dosage: 800 MG, DAILY
  2. CLOZAPINE [Suspect]
     Indication: SCHIZOPHRENIA, PARANOID TYPE
     Dosage: 250 MG, QD
     Route: 048
     Dates: start: 20110428
  3. VALPROATE SODIUM [Concomitant]
     Indication: EPILEPSY
     Dosage: 1 G, DAILY
     Route: 048
  4. LEVETIRACETAM [Concomitant]
     Indication: EPILEPSY
     Dosage: 1.5 G, DAILY
     Route: 048
  5. CLOZAPINE [Suspect]
     Dosage: 125 MG, DAILY
     Route: 048

REACTIONS (3)
  - SOMNOLENCE [None]
  - EPILEPSY [None]
  - FALL [None]
